FAERS Safety Report 23359683 (Version 1)
Quarter: 2024Q1

REPORT INFORMATION
  Report Type: Spontaneous
  Country: DE (occurrence: DE)
  Receive Date: 20240103
  Receipt Date: 20240103
  Transmission Date: 20240409
  Serious: Yes (Hospitalization)
  Sender: FDA-Public Use
  Company Number: DE-JNJFOC-20230903985

PATIENT
  Sex: Female

DRUGS (3)
  1. DARZALEX [Suspect]
     Active Substance: DARATUMUMAB
     Indication: Plasma cell myeloma
     Dosage: LAST ADMINISTERED DOSE BEFORE SAE: 21-AUG-2023NEXT SCHEDULED THERAPY: 20-AUG-2023
     Route: 058
     Dates: start: 20220822
  2. LENALIDOMIDE [Suspect]
     Active Substance: LENALIDOMIDE
     Indication: Plasma cell myeloma
     Dosage: LAST ADMINISTERED DOSE BEFORE SAE: AUG-2023NEXT SCHEDULED THERAPY: 31-AUG-2023
     Route: 065
     Dates: start: 20220429
  3. PREDNISOLONE [Suspect]
     Active Substance: PREDNISOLONE
     Indication: Plasma cell myeloma
     Dosage: LAST ADMINISTERED DOSE BEFORE SAE: AUG-2023NEXT SCHEDULED THERAPY: 31-AUG-2023
     Route: 065
     Dates: start: 20220822

REACTIONS (1)
  - COVID-19 pneumonia [Recovered/Resolved]

NARRATIVE: CASE EVENT DATE: 20230819
